FAERS Safety Report 8290148-6 (Version None)
Quarter: 2012Q2

REPORT INFORMATION
  Report Type: 
  Country: None (occurrence: None)
  Receive Date: 20120417
  Receipt Date: 20120411
  Transmission Date: 20120825
  Serious: Yes (Hospitalization)
  Sender: FDA-Public Use
  Company Number: PR-ABBOTT-12P-131-0925219-00

PATIENT
  Sex: Female
  Weight: 55.842 kg

DRUGS (9)
  1. HUMIRA [Suspect]
     Indication: RHEUMATOID ARTHRITIS
     Route: 058
     Dates: start: 20100501, end: 20120301
  2. ZOCOR [Concomitant]
     Indication: HYPERCHOLESTEROLAEMIA
     Route: 048
  3. CORTISONE ACETATE [Concomitant]
     Indication: PRODUCT USED FOR UNKNOWN INDICATION
     Dosage: 2 TABLETS DAILY
     Route: 048
  4. METHOTREXATE [Concomitant]
     Indication: PRODUCT USED FOR UNKNOWN INDICATION
     Dosage: 6 TABLETS ONCE A WEEK
     Route: 048
  5. CALAFRAM [Concomitant]
     Indication: PRODUCT USED FOR UNKNOWN INDICATION
     Route: 048
  6. ULTRAM [Concomitant]
     Indication: PRODUCT USED FOR UNKNOWN INDICATION
     Route: 048
  7. FOLIC ACID [Concomitant]
     Indication: PRODUCT USED FOR UNKNOWN INDICATION
     Route: 048
  8. VASOTEC [Concomitant]
     Indication: HYPERTENSION
     Route: 048
  9. NEURONTIN [Concomitant]
     Indication: PRODUCT USED FOR UNKNOWN INDICATION
     Route: 048

REACTIONS (3)
  - CEREBRAL INFARCTION [None]
  - RED BLOOD CELL SEDIMENTATION RATE INCREASED [None]
  - RHEUMATOID ARTHRITIS [None]
